FAERS Safety Report 5843910-0 (Version None)
Quarter: 2008Q3

REPORT INFORMATION
  Report Type: 
  Country: None (occurrence: None)
  Receive Date: 20080813
  Receipt Date: 20080805
  Transmission Date: 20090109
  Serious: Yes (Other)
  Sender: FDA-Public Use
  Company Number: CA-AMGEN-KDL276196

PATIENT
  Sex: Female

DRUGS (2)
  1. ENBREL [Suspect]
     Indication: RHEUMATOID ARTHRITIS
     Route: 058
  2. PLAQUENIL [Concomitant]

REACTIONS (4)
  - FURUNCLE [None]
  - PYODERMA GANGRENOSUM [None]
  - RHEUMATOID ARTHRITIS [None]
  - SINUSITIS [None]
